FAERS Safety Report 5235562-8 (Version None)
Quarter: 2007Q1

REPORT INFORMATION
  Report Type: 
  Country: None (occurrence: None)
  Receive Date: 20070212
  Receipt Date: 20070202
  Transmission Date: 20070707
  Serious: Yes (Death)
  Sender: FDA-Public Use
  Company Number: 2007UW01018

PATIENT
  Age: 77 Year
  Sex: Male

DRUGS (5)
  1. CRESTOR [Suspect]
     Indication: BLOOD CHOLESTEROL INCREASED
     Route: 048
  2. ACCUPRIL [Concomitant]
  3. AMIODARONE HCL [Concomitant]
  4. COREG [Concomitant]
  5. COUMADIN [Concomitant]

REACTIONS (1)
  - RENAL FAILURE ACUTE [None]
